FAERS Safety Report 7338278-7 (Version None)
Quarter: 2011Q1

REPORT INFORMATION
  Report Type: 
  Country: None (occurrence: None)
  Receive Date: 20110308
  Receipt Date: 20110303
  Transmission Date: 20110831
  Serious: Yes (Other)
  Sender: FDA-Public Use
  Company Number: CN-PFIZER INC-2011047360

PATIENT

DRUGS (1)
  1. VFEND [Suspect]

REACTIONS (2)
  - LUNG TRANSPLANT REJECTION [None]
  - DRUG INTERACTION [None]
